FAERS Safety Report 6802035-8 (Version None)
Quarter: 2010Q2

REPORT INFORMATION
  Report Type: 
  Country: None (occurrence: None)
  Receive Date: 20100629
  Receipt Date: 20070816
  Transmission Date: 20101027
  Serious: No
  Sender: FDA-Public Use
  Company Number: US-PFIZER INC-2007070755

PATIENT
  Sex: Female

DRUGS (1)
  1. ALDACTONE [Suspect]

REACTIONS (3)
  - AMENORRHOEA [None]
  - MIGRAINE [None]
  - NAUSEA [None]
